FAERS Safety Report 22232121 (Version 1)
Quarter: 2023Q2

REPORT INFORMATION
  Report Type: Spontaneous
  Country: US (occurrence: None)
  Receive Date: 20230420
  Receipt Date: 20230420
  Transmission Date: 20230721
  Serious: No
  Sender: FDA-Public Use
  Company Number: US-ROCHE-3245930

PATIENT
  Age: 91 Year
  Sex: Female

DRUGS (1)
  1. ESBRIET [Suspect]
     Active Substance: PIRFENIDONE
     Indication: Product used for unknown indication
     Dosage: 1 TAB TID FOR 2 WEEKS, THEN 2 TABS TID FOR 3 WEEKS, THEN 3 TABS TID
     Route: 048
     Dates: start: 2022

REACTIONS (2)
  - Off label use [Unknown]
  - No adverse event [Unknown]
